FAERS Safety Report 7730830-X (Version None)
Quarter: 2011Q3

REPORT INFORMATION
  Report Type: 
  Country: None (occurrence: None)
  Receive Date: 20110901
  Receipt Date: 20110901
  Transmission Date: 20111222
  Serious: Yes (Other)
  Sender: FDA-Public Use
  Company Number: None

PATIENT
  Age: 43 Year
  Sex: Female
  Weight: 57.1 kg

DRUGS (6)
  1. AMBIEN [Concomitant]
  2. ACIPHEX [Concomitant]
  3. BENLYSTA [Suspect]
     Indication: ACCIDENTAL EXPOSURE
     Dates: start: 20110818
  4. GOLIMUMAB [Concomitant]
  5. AZATHIOPRINE [Concomitant]
  6. SYNTHROID [Concomitant]

REACTIONS (6)
  - PRURITUS [None]
  - ACCIDENTAL EXPOSURE [None]
  - URTICARIA [None]
  - MEDICATION ERROR [None]
  - THROAT IRRITATION [None]
  - DYSPHONIA [None]
